FAERS Safety Report 6343067-6 (Version None)
Quarter: 2009Q3

REPORT INFORMATION
  Report Type: 
  Country: None (occurrence: None)
  Receive Date: 20090903
  Receipt Date: 20090820
  Transmission Date: 20100115
  Serious: Yes (Hospitalization)
  Sender: FDA-Public Use
  Company Number: 8047556

PATIENT
  Age: 58 Year
  Sex: Female
  Weight: 47.5 kg

DRUGS (5)
  1. CDP870 [Suspect]
     Indication: RHEUMATOID ARTHRITIS
     Dosage: SC
     Route: 058
     Dates: start: 20090512
  2. METHOTREXATE [Concomitant]
  3. FOLIC ACID [Concomitant]
  4. LOXOPROFEN SODIUM [Concomitant]
  5. ISONIAZID [Concomitant]

REACTIONS (3)
  - ATYPICAL MYCOBACTERIAL INFECTION [None]
  - CHEST X-RAY ABNORMAL [None]
  - DRUG EFFECT DECREASED [None]
